FAERS Safety Report 6395525-6 (Version None)
Quarter: 2009Q4

REPORT INFORMATION
  Report Type: 
  Country: None (occurrence: None)
  Receive Date: 20091009
  Receipt Date: 20091001
  Transmission Date: 20100525
  Serious: Yes (Other)
  Sender: FDA-Public Use
  Company Number: US-ABBOTT-09P-163-0600421-00

PATIENT
  Sex: Female
  Weight: 37.228 kg

DRUGS (2)
  1. HUMIRA [Suspect]
     Indication: CROHN'S DISEASE
     Route: 058
     Dates: start: 20090831
  2. OXYCODONE [Concomitant]
     Indication: PAIN

REACTIONS (8)
  - CATHETER SITE PAIN [None]
  - CHEST PAIN [None]
  - DYSPNOEA [None]
  - INJECTION SITE IRRITATION [None]
  - NECK PAIN [None]
  - PULMONARY THROMBOSIS [None]
  - THROMBOSIS [None]
  - WHITE BLOOD CELL COUNT ABNORMAL [None]
